FAERS Safety Report 7430781-4 (Version None)
Quarter: 2011Q2

REPORT INFORMATION
  Report Type: 
  Country: None (occurrence: None)
  Receive Date: 20110421
  Receipt Date: 20110412
  Transmission Date: 20111010
  Serious: Yes (Hospitalization, Other)
  Sender: FDA-Public Use
  Company Number: PHHY2011NL30697

PATIENT
  Sex: Male

DRUGS (13)
  1. CARBASALATE CALCIUM [Concomitant]
  2. METFORMIN [Concomitant]
  3. METOCLOPRAMIDE [Concomitant]
  4. OXYNORM [Concomitant]
  5. ZOMETA [Suspect]
     Dosage: 4 MG/5 ML
     Route: 042
     Dates: start: 20110323
  6. TOLBUTAMIDE [Concomitant]
  7. SIMVASTATIN [Concomitant]
  8. PERINDOPRIL [Concomitant]
  9. BUTALAMINE [Concomitant]
  10. ZOMETA [Suspect]
     Dosage: 4 MG/5 ML
     Route: 042
     Dates: start: 20110222
  11. OXYCONTIN [Concomitant]
  12. ASPIRIN [Concomitant]
  13. ZOMETA [Suspect]
     Indication: METASTASIS
     Dosage: 4 MG/5 ML
     Route: 042
     Dates: start: 20110126

REACTIONS (3)
  - GENERAL PHYSICAL HEALTH DETERIORATION [None]
  - PAIN [None]
  - MALAISE [None]
